FAERS Safety Report 12289600 (Version 1)
Quarter: 2016Q2

REPORT INFORMATION
  Report Type: Spontaneous
  Country: BR (occurrence: BR)
  Receive Date: 20160421
  Receipt Date: 20160421
  Transmission Date: 20160815
  Serious: Yes (Other)
  Sender: FDA-Public Use
  Company Number: BR-ELI_LILLY_AND_COMPANY-BR201601008468

PATIENT
  Age: 29 Year
  Sex: Female
  Weight: 72 kg

DRUGS (1)
  1. HUMULIN N [Suspect]
     Active Substance: INSULIN HUMAN
     Indication: GESTATIONAL DIABETES
     Dosage: 8 IU, BEFORE DINNER
     Route: 058
     Dates: start: 201512, end: 20160418

REACTIONS (7)
  - Injection site pain [Unknown]
  - Exposure during breast feeding [Unknown]
  - Papule [Not Recovered/Not Resolved]
  - Maternal distress during labour [Recovered/Resolved]
  - Blood glucose abnormal [Unknown]
  - Maternal exposure during pregnancy [Unknown]
  - Hypersensitivity [Not Recovered/Not Resolved]

NARRATIVE: CASE EVENT DATE: 201604
